FAERS Safety Report 10364146 (Version 1)
Quarter: 2014Q3

REPORT INFORMATION
  Report Type: Spontaneous
  Country: CA (occurrence: CA)
  Receive Date: 20140806
  Receipt Date: 20140806
  Transmission Date: 20150326
  Serious: Yes (Hospitalization, Other)
  Sender: FDA-Public Use
  Company Number: CA-AMGEN-CANSP2014057750

PATIENT
  Age: 59 Year
  Sex: Female

DRUGS (8)
  1. DALTEPARIN [Concomitant]
     Active Substance: DALTEPARIN
     Route: 058
  2. NORTRIPTYLINE [Concomitant]
     Active Substance: NORTRIPTYLINE
  3. VITAMIN D                          /00107901/ [Concomitant]
     Active Substance: ERGOCALCIFEROL
  4. ONDANSETRON [Concomitant]
     Active Substance: ONDANSETRON
  5. METOCLOPRAMIDE. [Concomitant]
     Active Substance: METOCLOPRAMIDE
  6. CALCIUM [Concomitant]
     Active Substance: CALCIUM
  7. XGEVA [Suspect]
     Active Substance: DENOSUMAB
     Indication: PRODUCT USED FOR UNKNOWN INDICATION
     Route: 065
  8. HYDROMORPHONE [Concomitant]
     Active Substance: HYDROMORPHONE
     Indication: PAIN
     Dosage: 15 MG, Q12H
     Route: 048

REACTIONS (12)
  - Blood pressure increased [Unknown]
  - Confusional state [Unknown]
  - Acute myocardial infarction [Unknown]
  - Stress cardiomyopathy [Unknown]
  - Toxicity to various agents [Recovered/Resolved]
  - Back pain [Unknown]
  - Cardiac failure congestive [Unknown]
  - Areflexia [Unknown]
  - Arthralgia [Unknown]
  - Spinal cord compression [Unknown]
  - Myoclonus [Unknown]
  - Muscular weakness [Unknown]
